FAERS Safety Report 10021519 (Version 1)
Quarter: 2014Q1

REPORT INFORMATION
  Report Type: Spontaneous
  Country: DE (occurrence: None)
  Receive Date: 20140313
  Receipt Date: 20140313
  Transmission Date: 20141002
  Serious: Yes (Other)
  Sender: FDA-Public Use
  Company Number: SP07248

PATIENT
  Age: 64 Year
  Sex: Female
  Weight: 55 kg

DRUGS (1)
  1. MOVIPREP [Suspect]
     Indication: BOWEL PREPARATION
     Dosage: (2 LIT), ORAL
     Route: 048
     Dates: start: 20131110, end: 20131110

REACTIONS (5)
  - Nausea [None]
  - Dizziness [None]
  - Feeling cold [None]
  - Syncope [None]
  - Drug ineffective [None]
